FAERS Safety Report 17889891 (Version 1)
Quarter: 2020Q2

REPORT INFORMATION
  Report Type: Spontaneous
  Country: US (occurrence: US)
  Receive Date: 20200612
  Receipt Date: 20200612
  Transmission Date: 20200714
  Serious: No
  Sender: FDA-Public Use
  Company Number: US-BIOGEN-2015BI033149

PATIENT
  Age: 54 Year
  Sex: Male

DRUGS (3)
  1. TECFIDERA [Suspect]
     Active Substance: DIMETHYL FUMARATE
     Dosage: MAINTENANCE DOSE
     Route: 048
     Dates: start: 201412
  2. TECFIDERA [Suspect]
     Active Substance: DIMETHYL FUMARATE
     Indication: MULTIPLE SCLEROSIS
     Dosage: STARTING DOSE
     Route: 048
     Dates: start: 20141210, end: 201412
  3. TECFIDERA [Suspect]
     Active Substance: DIMETHYL FUMARATE
     Route: 048
     Dates: start: 20200604

REACTIONS (8)
  - Nausea [Unknown]
  - Dyspnoea [Unknown]
  - Peripheral swelling [Unknown]
  - Fall [Recovered/Resolved]
  - Flushing [Unknown]
  - Multiple sclerosis [Unknown]
  - Product dose omission [Unknown]
  - Ankle fracture [Unknown]

NARRATIVE: CASE EVENT DATE: 201412
